FAERS Safety Report 5466580-2 (Version None)
Quarter: 2007Q3

REPORT INFORMATION
  Report Type: 
  Country: None (occurrence: None)
  Receive Date: 20070925
  Receipt Date: 20070918
  Transmission Date: 20080115
  Serious: Yes (Other)
  Sender: FDA-Public Use
  Company Number: PHEH2007US12610

PATIENT
  Sex: Female

DRUGS (2)
  1. DIOVAN [Suspect]
     Dosage: 160MG, UNK
  2. DIOVAN HCT [Suspect]
     Dosage: 320MG VAL/12.5MG HCT, UNK

REACTIONS (1)
  - DEAFNESS UNILATERAL [None]
